FAERS Safety Report 14369050 (Version 1)
Quarter: 2018Q1

REPORT INFORMATION
  Report Type: Spontaneous
  Country: US (occurrence: US)
  Receive Date: 20180109
  Receipt Date: 20180109
  Transmission Date: 20180509
  Serious: No
  Sender: FDA-Public Use
  Company Number: US-DRREDDYS-USA/USA/16/0086018

PATIENT
  Age: 30 Year
  Sex: Male
  Weight: 72.5 kg

DRUGS (1)
  1. NICOTINE. [Suspect]
     Active Substance: NICOTINE
     Indication: SMOKING CESSATION THERAPY
     Route: 062
     Dates: start: 20161222, end: 20161228

REACTIONS (2)
  - Drug dose omission [Unknown]
  - Product adhesion issue [Unknown]
